FAERS Safety Report 7075419-3 (Version None)
Quarter: 2010Q4

REPORT INFORMATION
  Report Type: 
  Country: None (occurrence: None)
  Receive Date: 20101030
  Receipt Date: 20100924
  Transmission Date: 20110411
  Serious: No
  Sender: FDA-Public Use
  Company Number: US-WYE-H17600010

PATIENT
  Age: 77 Year
  Sex: Female
  Weight: 59.93 kg

DRUGS (6)
  1. ALAVERT [Suspect]
     Indication: HYPERSENSITIVITY
     Dosage: 1 TO 2 TABLETS AS NEEDED
     Route: 048
     Dates: start: 20090101
  2. ALAVERT [Suspect]
     Indication: FOOD ALLERGY
  3. VITAMIN B COMPLEX CAP [Concomitant]
  4. MULTI-VITAMINS [Concomitant]
  5. LEVOXYL [Concomitant]
  6. SIMVASTATIN [Concomitant]

REACTIONS (2)
  - DRUG INEFFECTIVE [None]
  - OVERDOSE [None]
